FAERS Safety Report 6345016-3 (Version None)
Quarter: 2009Q3

REPORT INFORMATION
  Report Type: 
  Country: None (occurrence: None)
  Receive Date: 20090909
  Receipt Date: 20090831
  Transmission Date: 20100115
  Serious: Yes (Hospitalization)
  Sender: FDA-Public Use
  Company Number: US-BIOGENIDEC-2009BI016418

PATIENT
  Age: 52 Year
  Sex: Female

DRUGS (15)
  1. TYSABRI [Suspect]
     Indication: MULTIPLE SCLEROSIS
     Route: 042
     Dates: start: 20070629, end: 20090429
  2. TYSABRI [Suspect]
     Route: 042
     Dates: start: 20090801
  3. REMERON [Concomitant]
     Indication: DEPRESSION
  4. REMERON [Concomitant]
     Dates: start: 20081028
  5. RESTASIS [Concomitant]
     Route: 047
  6. AVAPRO [Concomitant]
     Route: 048
  7. NAPROSYN [Concomitant]
     Route: 048
  8. PROZAC [Concomitant]
     Indication: DEPRESSION
     Route: 048
  9. PROZAC [Concomitant]
     Route: 048
     Dates: start: 20081028
  10. ZOCOR [Concomitant]
     Route: 048
  11. LEVOXYL [Concomitant]
     Route: 048
  12. DITROPAN XL [Concomitant]
     Route: 048
  13. NEURONTIN [Concomitant]
     Route: 048
  14. PROVIGIL [Concomitant]
     Route: 048
  15. REPLIVA [Concomitant]
     Route: 048

REACTIONS (8)
  - ABDOMINAL PAIN UPPER [None]
  - ANAEMIA [None]
  - COUGH [None]
  - FATIGUE [None]
  - GASTROOESOPHAGEAL REFLUX DISEASE [None]
  - PERICARDITIS [None]
  - SLEEP DISORDER [None]
  - WEIGHT LOSS POOR [None]
